FAERS Safety Report 13793624 (Version 1)
Quarter: 2017Q3

REPORT INFORMATION
  Report Type: Report from Study
  Country: KR (occurrence: KR)
  Receive Date: 20170726
  Receipt Date: 20170726
  Transmission Date: 20171127
  Serious: Yes (Other)
  Sender: FDA-Public Use
  Company Number: KR-B.I. PHARMACEUTICALS,INC./RIDGEFIELD-2016-BI-072811

PATIENT
  Age: 80 Year
  Sex: Female

DRUGS (7)
  1. COUGH SYRUP [Concomitant]
     Active Substance: DEXTROMETHORPHAN HYDROBROMIDE\GUAIFENESIN
     Indication: PNEUMONIA
     Route: 065
     Dates: start: 20160804, end: 20160822
  2. CURAN [Concomitant]
     Active Substance: RANITIDINE HYDROCHLORIDE
     Indication: PROPHYLAXIS
     Route: 065
     Dates: start: 20160805, end: 20160826
  3. SURFOLASE [Concomitant]
     Indication: PNEUMONIA
     Route: 065
     Dates: start: 20160804, end: 20160822
  4. CINALONG [Concomitant]
     Indication: HYPERTENSION
     Route: 065
     Dates: start: 20160809
  5. PRADAXA [Suspect]
     Active Substance: DABIGATRAN ETEXILATE MESYLATE
     Indication: ATRIAL FIBRILLATION
     Route: 065
     Dates: start: 20160807
  6. NOLVADEX D [Concomitant]
     Active Substance: TAMOXIFEN CITRATE
     Indication: PROPHYLAXIS
     Route: 065
  7. LIPITOR [Concomitant]
     Active Substance: ATORVASTATIN CALCIUM
     Indication: CARDIOVASCULAR EVENT PROPHYLAXIS
     Route: 065
     Dates: start: 20160804, end: 20160826

REACTIONS (1)
  - Dementia [Not Recovered/Not Resolved]

NARRATIVE: CASE EVENT DATE: 20160809
